FAERS Safety Report 7324101-3 (Version None)
Quarter: 2011Q1

REPORT INFORMATION
  Report Type: 
  Country: None (occurrence: None)
  Receive Date: 20110201
  Receipt Date: 20101213
  Transmission Date: 20110831
  Serious: Yes (Other)
  Sender: FDA-Public Use
  Company Number: 236485USA

PATIENT
  Age: 41 Year
  Sex: Female

DRUGS (1)
  1. LOSEASONIQUE [Suspect]
     Dosage: (1 IN 1)
     Dates: start: 20090814, end: 20100523

REACTIONS (5)
  - PREGNANCY ON ORAL CONTRACEPTIVE [None]
  - DRUG INEFFECTIVE [None]
  - UTERINE HAEMORRHAGE [None]
  - ABDOMINAL PAIN UPPER [None]
  - PREMATURE LABOUR [None]
